FAERS Safety Report 23578846 (Version 2)
Quarter: 2024Q1

REPORT INFORMATION
  Report Type: Spontaneous
  Country: US (occurrence: US)
  Receive Date: 20240229
  Receipt Date: 20240306
  Transmission Date: 20240409
  Serious: No
  Sender: FDA-Public Use
  Company Number: US-AMGEN-USASP2024041310

PATIENT
  Sex: Male

DRUGS (2)
  1. RIABNI [Suspect]
     Active Substance: RITUXIMAB-ARRX
     Indication: Waldenstrom^s macroglobulinaemia
     Dosage: 830 MILLIGRAM, UNK
     Route: 065
  2. RUXIENCE [Concomitant]
     Active Substance: RITUXIMAB-PVVR

REACTIONS (3)
  - Pruritus [Unknown]
  - Chills [Unknown]
  - Flushing [Unknown]
